FAERS Safety Report 24622311 (Version 1)
Quarter: 2024Q4

REPORT INFORMATION
  Report Type: Spontaneous
  Country: CA (occurrence: CA)
  Receive Date: 20241115
  Receipt Date: 20241115
  Transmission Date: 20250115
  Serious: Yes (Life-Threatening, Disabling, Other)
  Sender: ORGANON
  Company Number: CA-ORGANON-O2411CAN000781

PATIENT
  Age: 35 Year
  Sex: Female

DRUGS (1)
  1. MOMETASONE FUROATE [Suspect]
     Active Substance: MOMETASONE FUROATE
     Indication: Eczema
     Dosage: 60 MILLIGRAM, PRN (AS REQUIRED)
     Route: 061

REACTIONS (13)
  - Dermatitis exfoliative generalised [Recovering/Resolving]
  - Alopecia [Recovering/Resolving]
  - Blindness transient [Recovering/Resolving]
  - Depression [Recovering/Resolving]
  - Urticaria [Recovering/Resolving]
  - Infection [Recovering/Resolving]
  - Insomnia [Recovering/Resolving]
  - Neuralgia [Recovering/Resolving]
  - Pruritus [Recovering/Resolving]
  - Skin burning sensation [Recovering/Resolving]
  - Skin lesion [Recovering/Resolving]
  - Suicidal ideation [Recovering/Resolving]
  - Topical steroid withdrawal reaction [Recovering/Resolving]
